FAERS Safety Report 6104062-5 (Version None)
Quarter: 2009Q1

REPORT INFORMATION
  Report Type: 
  Country: None (occurrence: None)
  Receive Date: 20090305
  Receipt Date: 20090115
  Transmission Date: 20090719
  Serious: Yes (Hospitalization)
  Sender: FDA-Public Use
  Company Number: US-PFIZER INC-2006033536

PATIENT
  Sex: Male
  Weight: 81 kg

DRUGS (5)
  1. SUNITINIB MALATE [Suspect]
     Indication: GASTROINTESTINAL STROMAL TUMOUR
     Dosage: 50MG, 1X/DAY,  X 29 DAYS
     Route: 048
     Dates: start: 20051202, end: 20060310
  2. PLAVIX [Concomitant]
     Route: 048
     Dates: start: 20050503
  3. CARTIA XT [Concomitant]
     Route: 048
     Dates: start: 20040101
  4. METOPROLOL SUCCINATE [Concomitant]
     Route: 048
     Dates: start: 19960101
  5. ASPIRIN [Concomitant]
     Route: 048
     Dates: start: 20040101

REACTIONS (5)
  - GASTRITIS [None]
  - MYOCARDIAL INFARCTION [None]
  - NAUSEA [None]
  - OESOPHAGITIS [None]
  - VOMITING [None]
